FAERS Safety Report 24558601 (Version 1)
Quarter: 2024Q4

REPORT INFORMATION
  Report Type: Spontaneous
  Country: US (occurrence: US)
  Receive Date: 20241029
  Receipt Date: 20241029
  Transmission Date: 20250115
  Serious: Yes (Other)
  Sender: LUPIN
  Company Number: US-LUPIN PHARMACEUTICALS INC.-2024-10566

PATIENT
  Sex: Female

DRUGS (1)
  1. DAYSEE [Suspect]
     Active Substance: ETHINYL ESTRADIOL\LEVONORGESTREL
     Indication: Polymenorrhoea
     Dosage: UNK
     Route: 065

REACTIONS (3)
  - Suicidal ideation [Unknown]
  - Vaginal haemorrhage [Recovered/Resolved]
  - Migraine [Not Recovered/Not Resolved]
